FAERS Safety Report 24946485 (Version 1)
Quarter: 2025Q1

REPORT INFORMATION
  Report Type: Report from Study
  Country: CL (occurrence: CL)
  Receive Date: 20250210
  Receipt Date: 20250210
  Transmission Date: 20250408
  Serious: Yes (Other)
  Sender: JOHNSON AND JOHNSON
  Company Number: CL-JNJFOC-20250189317

PATIENT
  Age: 59 Year
  Sex: Male

DRUGS (8)
  1. SIMPONI [Suspect]
     Active Substance: GOLIMUMAB
     Indication: Rheumatoid arthritis
     Route: 058
     Dates: start: 20240819
  2. ACETAMINOPHEN [Concomitant]
     Active Substance: ACETAMINOPHEN
  3. TRAMADOL [Concomitant]
     Active Substance: TRAMADOL
  4. IBUPROFEN [Concomitant]
     Active Substance: IBUPROFEN
  5. CELECOXIB [Concomitant]
     Active Substance: CELECOXIB
  6. NIFEDIPINE [Concomitant]
     Active Substance: NIFEDIPINE
  7. ALENDRONIC ACID [Concomitant]
     Active Substance: ALENDRONIC ACID
  8. PREDNISONE [Concomitant]
     Active Substance: PREDNISONE

REACTIONS (7)
  - Rheumatoid arthritis [Unknown]
  - Hepatic pain [Unknown]
  - Diarrhoea [Unknown]
  - Abdominal discomfort [Unknown]
  - Abdominal distension [Unknown]
  - Inflammation [Unknown]
  - Contusion [Unknown]
